FAERS Safety Report 16886348 (Version 1)
Quarter: 2019Q4

REPORT INFORMATION
  Report Type: Report from Study
  Country: US (occurrence: US)
  Receive Date: 20191004
  Receipt Date: 20191004
  Transmission Date: 20200122
  Serious: Yes (Other)
  Sender: FDA-Public Use
  Company Number: US-MALLINCKRODT-T201905434

PATIENT
  Sex: Female

DRUGS (2)
  1. REPOSITORY CORTICOTROPIN INJECTION [Suspect]
     Active Substance: CORTICOTROPIN
     Indication: GUTTATE PSORIASIS
     Dosage: 80 UNITS/1 ML, 2 TIMES PER WEEK SUNDAY/THURSDAY
     Route: 058
     Dates: start: 2019
  2. REPOSITORY CORTICOTROPIN INJECTION [Suspect]
     Active Substance: CORTICOTROPIN
     Indication: PSORIATIC ARTHROPATHY
     Dosage: 80 UNITS/1 ML, 2 TIMES PER WEEK SUNDAY/THURSDAY
     Route: 058
     Dates: start: 20190620, end: 2019

REACTIONS (6)
  - Condition aggravated [Unknown]
  - Therapeutic product effect incomplete [Not Recovered/Not Resolved]
  - Omphalitis [Recovering/Resolving]
  - Diabetes mellitus [Not Recovered/Not Resolved]
  - Psoriasis [Recovering/Resolving]
  - Nasopharyngitis [Not Recovered/Not Resolved]

NARRATIVE: CASE EVENT DATE: 2019
